FAERS Safety Report 4487755-5 (Version None)
Quarter: 2004Q4

REPORT INFORMATION
  Report Type: 
  Country: None (occurrence: None)
  Receive Date: 20041027
  Receipt Date: 20041027
  Transmission Date: 20050328
  Serious: Yes (Hospitalization)
  Sender: FDA-Public Use
  Company Number: None

PATIENT
  Age: 52 Year
  Sex: Male
  Weight: 78.4723 kg

DRUGS (6)
  1. VANCOMYCIN [Suspect]
     Indication: OSTEOMYELITIS
     Dosage: 1.5 G IV QD
     Route: 042
     Dates: start: 20040806, end: 20040822
  2. GATIFLOXACIN [Concomitant]
  3. HEPARIN LOCK FLU  SN SOLN [Concomitant]
  4. METHOCARBAMOL [Concomitant]
  5. PIROXICAM [Concomitant]
  6. SIMVASTATIN [Concomitant]

REACTIONS (6)
  - CHILLS [None]
  - PYREXIA [None]
  - RASH GENERALISED [None]
  - RASH MACULO-PAPULAR [None]
  - SWELLING FACE [None]
  - SWOLLEN TONGUE [None]
